FAERS Safety Report 20208574 (Version 1)
Quarter: 2021Q4

REPORT INFORMATION
  Report Type: Spontaneous
  Country: US (occurrence: None)
  Receive Date: 20211220
  Receipt Date: 20211220
  Transmission Date: 20220303
  Serious: No
  Sender: FDA-Public Use
  Company Number: 2021A886807

PATIENT

DRUGS (1)
  1. CALQUENCE [Suspect]
     Active Substance: ACALABRUTINIB
     Route: 048

REACTIONS (12)
  - Bone pain [Unknown]
  - Myalgia [Unknown]
  - Pain [Unknown]
  - Dyspnoea [Unknown]
  - Therapeutic product ineffective [Unknown]
  - Cough [Unknown]
  - Feeling abnormal [Unknown]
  - Haemoglobin abnormal [Unknown]
  - Platelet disorder [Unknown]
  - Red blood cell count abnormal [Unknown]
  - Dyspnoea exertional [Unknown]
  - Neutrophil count abnormal [Unknown]
